FAERS Safety Report 6370680-2 (Version None)
Quarter: 2009Q3

REPORT INFORMATION
  Report Type: 
  Country: None (occurrence: None)
  Receive Date: 20090923
  Receipt Date: 20070905
  Transmission Date: 20100115
  Serious: Yes (Other)
  Sender: FDA-Public Use
  Company Number: US-ASTRAZENECA-2006UW26673

PATIENT
  Age: 16708 Day
  Sex: Female
  Weight: 69.4 kg

DRUGS (12)
  1. SEROQUEL [Suspect]
     Indication: SCHIZOPHRENIA
     Route: 048
     Dates: start: 20000101, end: 20040101
  2. SEROQUEL [Suspect]
     Indication: DEPRESSION
     Route: 048
     Dates: start: 20000101, end: 20040101
  3. SEROQUEL [Suspect]
     Dosage: 200 MG-300 MG
     Route: 048
     Dates: start: 20050325
  4. SEROQUEL [Suspect]
     Dosage: 200 MG-300 MG
     Route: 048
     Dates: start: 20050325
  5. ABILIFY [Concomitant]
  6. GEODON [Concomitant]
  7. RISPERDAL [Concomitant]
  8. CYCLOBENZAPRINE [Concomitant]
     Dates: start: 20061123
  9. CLONAZEPAM [Concomitant]
     Dates: start: 20061204
  10. DIAZEPAM [Concomitant]
     Dosage: 5-20 MG
     Route: 048
     Dates: start: 20050412
  11. TRAMADOL HYDROCHLORIDE [Concomitant]
     Dosage: 50-100 MG
     Route: 048
     Dates: start: 20050413
  12. TRAZODONE [Concomitant]
     Dosage: 100-150 MG
     Dates: start: 20050408

REACTIONS (2)
  - DIABETES MELLITUS [None]
  - DIABETIC COMA [None]
